FAERS Safety Report 5486055-4 (Version None)
Quarter: 2007Q4

REPORT INFORMATION
  Report Type: 
  Country: None (occurrence: None)
  Receive Date: 20071015
  Receipt Date: 20071002
  Transmission Date: 20080405
  Serious: Yes (Other)
  Sender: FDA-Public Use
  Company Number: CL-PFIZER INC-2007083728

PATIENT
  Age: 59 Year
  Sex: Female

DRUGS (1)
  1. VARENICLINE TABLETS [Suspect]
     Indication: SMOKING CESSATION THERAPY
     Route: 048
     Dates: start: 20070801, end: 20070901

REACTIONS (6)
  - CONVULSION [None]
  - FATIGUE [None]
  - MALAISE [None]
  - NAUSEA [None]
  - SYNCOPE [None]
  - UNEVALUABLE EVENT [None]
